FAERS Safety Report 5759597-1 (Version None)
Quarter: 2008Q2

REPORT INFORMATION
  Report Type: 
  Country: None (occurrence: None)
  Receive Date: 20080605
  Receipt Date: 20080522
  Transmission Date: 20081010
  Serious: Yes (Death, Hospitalization)
  Sender: FDA-Public Use
  Company Number: MX-AMGEN-US277531

PATIENT
  Sex: Male

DRUGS (3)
  1. ENBREL [Suspect]
     Indication: JUVENILE ARTHRITIS
     Dosage: UNKNOWN
     Route: 058
  2. CORTICOSTEROID NOS [Concomitant]
     Route: 065
  3. UNSPECIFIED ANTICOAGULANT [Concomitant]
     Route: 048

REACTIONS (5)
  - CUTANEOUS VASCULITIS [None]
  - PNEUMONIA [None]
  - PULMONARY EMBOLISM [None]
  - SKIN ULCER [None]
  - VARICELLA [None]
